FAERS Safety Report 12110253 (Version 4)
Quarter: 2019Q3

REPORT INFORMATION
  Report Type: Report from Study
  Country: US (occurrence: US)
  Receive Date: 20160224
  Receipt Date: 20190801
  Transmission Date: 20191004
  Serious: Yes (Death, Hospitalization)
  Sender: FDA-Public Use
  Company Number: US-ACTELION-A-US2016-131716

PATIENT
  Age: 77 Year
  Sex: Male
  Weight: 95.24 kg

DRUGS (33)
  1. ADEMPAS [Suspect]
     Active Substance: RIOCIGUAT
     Dosage: 1.0 MG, TID
     Route: 065
  2. VELETRI [Concomitant]
     Active Substance: EPOPROSTENOL
     Indication: PULMONARY ARTERIAL HYPERTENSION
  3. POTASSIUM CHLORIDE. [Concomitant]
     Active Substance: POTASSIUM CHLORIDE
  4. SYMBICORT [Concomitant]
     Active Substance: BUDESONIDE\FORMOTEROL FUMARATE DIHYDRATE
  5. TYLENOL [Concomitant]
     Active Substance: ACETAMINOPHEN
  6. WARFARIN [Concomitant]
     Active Substance: WARFARIN
  7. ASPIRIN. [Concomitant]
     Active Substance: ASPIRIN
  8. BYSTOLIC [Concomitant]
     Active Substance: NEBIVOLOL HYDROCHLORIDE
  9. LISINOPRIL. [Concomitant]
     Active Substance: LISINOPRIL
  10. MONTELUKAST [Concomitant]
     Active Substance: MONTELUKAST SODIUM
  11. DUREZOL [Concomitant]
     Active Substance: DIFLUPREDNATE
  12. PAROXETINE. [Concomitant]
     Active Substance: PAROXETINE
  13. TAMSULOSIN [Concomitant]
     Active Substance: TAMSULOSIN
  14. ZITHROMAX [Concomitant]
     Active Substance: AZITHROMYCIN DIHYDRATE
  15. ADCIRCA [Concomitant]
     Active Substance: TADALAFIL
  16. FERROUS SULFATE. [Concomitant]
     Active Substance: FERROUS SULFATE
  17. EYLEA [Concomitant]
     Active Substance: AFLIBERCEPT
  18. PAXIL [Concomitant]
     Active Substance: PAROXETINE HYDROCHLORIDE
  19. OPSUMIT [Suspect]
     Active Substance: MACITENTAN
     Dosage: 10 MG, QD
     Route: 048
     Dates: start: 20141202
  20. VITAMIN D3 [Concomitant]
     Active Substance: CHOLECALCIFEROL
  21. MAGNESIUM CALCIUM [Concomitant]
     Active Substance: CALCIUM CARBONATE\MAGNESIUM CARBONATE
  22. PANTOPRAZOLE [Concomitant]
     Active Substance: PANTOPRAZOLE
  23. ADEMPAS [Suspect]
     Active Substance: RIOCIGUAT
     Indication: PRODUCT USED FOR UNKNOWN INDICATION
     Dosage: 1.5 MG, TID
     Route: 065
  24. PROVENTIL [Concomitant]
     Active Substance: ALBUTEROL
  25. RANEXA [Concomitant]
     Active Substance: RANOLAZINE
  26. OMEPRAZOLE. [Concomitant]
     Active Substance: OMEPRAZOLE
  27. RAPAFLO [Concomitant]
     Active Substance: SILODOSIN
  28. ZETIA [Concomitant]
     Active Substance: EZETIMIBE
  29. COQ10 [Concomitant]
     Active Substance: UBIDECARENONE
  30. VITAMIN B12 [Concomitant]
     Active Substance: CYANOCOBALAMIN
  31. OPSUMIT [Suspect]
     Active Substance: MACITENTAN
     Indication: PULMONARY ARTERIAL HYPERTENSION
     Dosage: 10 MG, QD
     Route: 048
  32. BUPROPION. [Concomitant]
     Active Substance: BUPROPION
  33. HYDRALAZINE [Concomitant]
     Active Substance: HYDRALAZINE HYDROCHLORIDE

REACTIONS (49)
  - Chills [Recovered/Resolved]
  - Upper gastrointestinal haemorrhage [Recovered/Resolved]
  - Haemorrhoids [Unknown]
  - Polyp [Unknown]
  - Nasopharyngitis [Unknown]
  - Swelling [Not Recovered/Not Resolved]
  - Sputum abnormal [Recovered/Resolved]
  - International normalised ratio abnormal [Unknown]
  - Cough [Recovered/Resolved]
  - Occult blood positive [Not Recovered/Not Resolved]
  - Joint swelling [Unknown]
  - Nausea [Unknown]
  - Oedema [Unknown]
  - Vomiting [Unknown]
  - Pyrexia [Recovered/Resolved]
  - Sputum purulent [Unknown]
  - Haemorrhage [Unknown]
  - Contusion [Unknown]
  - Anaemia [Unknown]
  - Haematuria [Unknown]
  - Death [Fatal]
  - Chest X-ray abnormal [Recovered/Resolved]
  - Gastritis [Unknown]
  - Dizziness [Unknown]
  - Constipation [Unknown]
  - Respiratory tract infection [Unknown]
  - Productive cough [Unknown]
  - Fatigue [Recovered/Resolved]
  - Oesophagitis [Unknown]
  - Blood pressure decreased [Unknown]
  - Dyspepsia [Unknown]
  - Haemoptysis [Unknown]
  - Hypoxia [Recovered/Resolved]
  - Hyperhidrosis [Recovered/Resolved]
  - Cellulitis [Unknown]
  - Pulmonary function test decreased [Unknown]
  - Pneumonia [Unknown]
  - Acute respiratory failure [Recovered/Resolved]
  - Diverticulum [Unknown]
  - Palpitations [Unknown]
  - Generalised oedema [Unknown]
  - Unevaluable event [Unknown]
  - Balance disorder [Unknown]
  - Skin laceration [Unknown]
  - Dyspnoea [Unknown]
  - Haemoglobin decreased [Not Recovered/Not Resolved]
  - Transfusion [Unknown]
  - Faeces discoloured [Not Recovered/Not Resolved]
  - Fall [Unknown]

NARRATIVE: CASE EVENT DATE: 20150105
